FAERS Safety Report 10019015 (Version 2)
Quarter: 2014Q1

REPORT INFORMATION
  Report Type: Spontaneous
  Country: US (occurrence: US)
  Receive Date: 20140318
  Receipt Date: 20140328
  Transmission Date: 20141002
  Serious: Yes (Other)
  Sender: FDA-Public Use
  Company Number: US-ABBVIE-14P-163-1213566-00

PATIENT
  Age: 35 Year
  Sex: Male
  Weight: 85.81 kg

DRUGS (3)
  1. HUMIRA [Suspect]
     Indication: CROHN^S DISEASE
     Dates: start: 201306, end: 20140122
  2. HYDROCODONE [Concomitant]
     Indication: BACK PAIN
     Dosage: 7.5/325. OCCASIONAL
  3. IBUPROFEN [Concomitant]
     Indication: PRODUCT USED FOR UNKNOWN INDICATION
     Dosage: OCCASIONAL

REACTIONS (15)
  - Cholestatic liver injury [Unknown]
  - Liver function test abnormal [Unknown]
  - Cholestasis [Unknown]
  - Autoimmune hepatitis [Unknown]
  - Hepatic steatosis [Unknown]
  - Abdominal pain [Recovered/Resolved]
  - Jaundice [Recovered/Resolved]
  - Chromaturia [Recovered/Resolved]
  - Pruritus [Recovered/Resolved]
  - Small intestinal stenosis [Unknown]
  - Blood alkaline phosphatase increased [Unknown]
  - Alanine aminotransferase increased [Unknown]
  - Aspartate aminotransferase increased [Unknown]
  - Ceruloplasmin increased [Unknown]
  - Blood bilirubin increased [Recovering/Resolving]
